FAERS Safety Report 9161957 (Version 1)
Quarter: 2013Q1

REPORT INFORMATION
  Report Type: Spontaneous
  Country: US (occurrence: None)
  Receive Date: 20130208
  Receipt Date: 20130208
  Transmission Date: 20140127
  Serious: Yes (Hospitalization, Other)
  Sender: FDA-Public Use
  Company Number: FK201300299

PATIENT
  Age: 82 Year
  Sex: Female

DRUGS (1)
  1. CYANOCOBALAMIN INJECTION, USP (CYANOCOBALAMIN) (CYANOCOBALAMIN) [Suspect]
     Indication: VITAMIN B12 DEFICIENCY
     Route: 030

REACTIONS (3)
  - Hypersensitivity [None]
  - Heart rate increased [None]
  - Feeling jittery [None]
